FAERS Safety Report 14460414 (Version 1)
Quarter: 2018Q1

REPORT INFORMATION
  Report Type: Other
  Country: US (occurrence: US)
  Receive Date: 20180130
  Receipt Date: 20180130
  Transmission Date: 20180509
  Serious: No
  Sender: FDA-Public Use
  Company Number: US-ACORDA-ACO_140890_2017

PATIENT
  Age: 53 Year
  Sex: Female
  Weight: 97.96 kg

DRUGS (2)
  1. AMPYRA [Suspect]
     Active Substance: DALFAMPRIDINE
     Indication: GAIT DISTURBANCE
     Dosage: 10 MG, BID
     Route: 048
     Dates: start: 20170713, end: 20170722
  2. AMPYRA [Suspect]
     Active Substance: DALFAMPRIDINE
     Indication: MULTIPLE SCLEROSIS

REACTIONS (12)
  - Tongue discomfort [Recovered/Resolved]
  - Dry mouth [Not Recovered/Not Resolved]
  - Speech disorder [Not Recovered/Not Resolved]
  - Lip dry [Not Recovered/Not Resolved]
  - Dysphagia [Unknown]
  - Oral discomfort [Recovered/Resolved]
  - Vomiting [Unknown]
  - Throat irritation [Recovered/Resolved]
  - Nausea [Not Recovered/Not Resolved]
  - Tongue dry [Not Recovered/Not Resolved]
  - Swollen tongue [Not Recovered/Not Resolved]
  - Sensory loss [Not Recovered/Not Resolved]

NARRATIVE: CASE EVENT DATE: 20170713
